FAERS Safety Report 8236507-9 (Version None)
Quarter: 2012Q1

REPORT INFORMATION
  Report Type: 
  Country: None (occurrence: None)
  Receive Date: 20120327
  Receipt Date: 20120319
  Transmission Date: 20120608
  Serious: Yes (Hospitalization)
  Sender: FDA-Public Use
  Company Number: US-ASTELLAS-2012US001163

PATIENT
  Sex: Female

DRUGS (1)
  1. PROGRAF [Suspect]
     Indication: LIVER TRANSPLANT
     Dosage: 3 MG AM, 2 MG PM
     Dates: start: 20100601

REACTIONS (4)
  - ASCITES [None]
  - TREATMENT NONCOMPLIANCE [None]
  - ABDOMINAL PAIN [None]
  - OESOPHAGEAL CANDIDIASIS [None]
